FAERS Safety Report 5326425-8 (Version None)
Quarter: 2007Q2

REPORT INFORMATION
  Report Type: 
  Country: None (occurrence: None)
  Receive Date: 20070516
  Receipt Date: 20070503
  Transmission Date: 20071010
  Serious: Yes (Hospitalization)
  Sender: FDA-Public Use
  Company Number: GB-MERCK-0701GBR00207

PATIENT
  Age: 81 Year
  Sex: Male

DRUGS (8)
  1. INVANZ [Suspect]
     Indication: URINARY TRACT INFECTION
     Route: 041
     Dates: start: 20070103, end: 20070112
  2. AMLODIPINE BESYLATE [Concomitant]
     Indication: BLOOD PRESSURE
     Route: 048
  3. ENOXAPARIN SODIUM [Concomitant]
     Indication: THROMBOSIS PROPHYLAXIS
     Route: 058
  4. DOXAZOSIN MESYLATE [Concomitant]
     Indication: BLOOD PRESSURE
     Route: 048
  5. ERYTHROMYCIN [Concomitant]
     Indication: GASTROINTESTINAL MOTILITY DISORDER
     Route: 048
  6. METRONIDAZOLE [Concomitant]
     Indication: CLOSTRIDIAL INFECTION
     Route: 048
  7. OMEPRAZOLE [Concomitant]
     Indication: GASTRITIS
     Route: 048
  8. TOLBUTAMIDE [Concomitant]
     Route: 065

REACTIONS (6)
  - AGITATION [None]
  - CONFUSIONAL STATE [None]
  - DYSKINESIA [None]
  - EYE ROLLING [None]
  - HALLUCINATION [None]
  - RASH MORBILLIFORM [None]
